FAERS Safety Report 12987853 (Version 16)
Quarter: 2018Q1

REPORT INFORMATION
  Report Type: Report from Study
  Country: BR (occurrence: BR)
  Receive Date: 20161130
  Receipt Date: 20180327
  Transmission Date: 20180508
  Serious: Yes (Other)
  Sender: FDA-Public Use
  Company Number: PHHY2015BR022506

PATIENT
  Age: 75 Year
  Sex: Female
  Weight: 78 kg

DRUGS (6)
  1. SANDOSTATIN LAR DEPOT [Suspect]
     Active Substance: OCTREOTIDE ACETATE
     Indication: ACROMEGALY
     Dosage: 1 DF, QMO, EVERY 28 DAYS
     Route: 030
     Dates: start: 2013
  2. SANDOSTATIN LAR DEPOT [Suspect]
     Active Substance: OCTREOTIDE ACETATE
     Indication: BONE ATROPHY
     Dosage: 30 MG, QMO (EVERY 28 DAYS)
     Route: 030
  3. EVISTA [Concomitant]
     Active Substance: RALOXIFENE HYDROCHLORIDE
     Indication: PRODUCT USED FOR UNKNOWN INDICATION
     Dosage: 60 MG, UNK
     Route: 065
  4. CABERGOLINE. [Concomitant]
     Active Substance: CABERGOLINE
     Indication: PRODUCT USED FOR UNKNOWN INDICATION
     Dosage: 0.5 MG, UNK
     Route: 065
  5. SANDOSTATIN LAR DEPOT [Suspect]
     Active Substance: OCTREOTIDE ACETATE
     Indication: HYPOTHALAMO-PITUITARY DISORDER
     Dosage: 30 MG, EVERY 21 DAYS
     Route: 030
  6. DORMEX [Concomitant]
     Indication: PRODUCT USED FOR UNKNOWN INDICATION
     Dosage: 100 MG, UNK
     Route: 065

REACTIONS (52)
  - Head discomfort [Recovering/Resolving]
  - Bone pain [Recovering/Resolving]
  - Feeling of despair [Unknown]
  - Pyrexia [Unknown]
  - Pituitary tumour [Unknown]
  - Asthenia [Unknown]
  - Fear [Unknown]
  - Weight decreased [Unknown]
  - Syncope [Unknown]
  - Gait inability [Unknown]
  - Catarrh [Unknown]
  - Skin discolouration [Unknown]
  - Burning sensation [Unknown]
  - Swelling face [Recovered/Resolved]
  - Decreased activity [Unknown]
  - Pain [Unknown]
  - Neoplasm progression [Unknown]
  - Gastrointestinal pain [Unknown]
  - Limb discomfort [Unknown]
  - Inappropriate schedule of drug administration [Not Recovered/Not Resolved]
  - Oedema [Recovered/Resolved]
  - Deformity [Recovering/Resolving]
  - Arthralgia [Unknown]
  - Feeling abnormal [Unknown]
  - Swelling [Recovering/Resolving]
  - Weight increased [Recovered/Resolved]
  - Suicidal ideation [Unknown]
  - Joint swelling [Recovering/Resolving]
  - Headache [Recovering/Resolving]
  - Peripheral swelling [Recovered/Resolved]
  - Erythema [Unknown]
  - Varicophlebitis [Unknown]
  - Anxiety [Unknown]
  - Measles [Unknown]
  - Feeling hot [Unknown]
  - Fatigue [Unknown]
  - Gait disturbance [Recovered/Resolved]
  - Memory impairment [Recovering/Resolving]
  - Hyperhidrosis [Recovering/Resolving]
  - Malaise [Not Recovered/Not Resolved]
  - Aphasia [Recovering/Resolving]
  - Feeding disorder [Unknown]
  - Disease complication [Unknown]
  - Nasopharyngitis [Unknown]
  - Bone disorder [Unknown]
  - Dyspnoea [Unknown]
  - Weight increased [Unknown]
  - Pain in extremity [Recovering/Resolving]
  - Condition aggravated [Recovering/Resolving]
  - Arthropathy [Unknown]
  - Sinusitis [Unknown]
  - Abdominal distension [Unknown]

NARRATIVE: CASE EVENT DATE: 201606
